FAERS Safety Report 19886437 (Version 1)
Quarter: 2021Q3

REPORT INFORMATION
  Report Type: Report from Study
  Country: IT (occurrence: IT)
  Receive Date: 20210927
  Receipt Date: 20210927
  Transmission Date: 20211014
  Serious: Yes (Hospitalization)
  Sender: FDA-Public Use
  Company Number: IT-MYLANLABS-2021M1064547

PATIENT
  Age: 20 Year
  Sex: Female

DRUGS (1)
  1. QUETIAPINE. [Suspect]
     Active Substance: QUETIAPINE
     Indication: PRODUCT USED FOR UNKNOWN INDICATION
     Dosage: 24 GRAM, TOTAL
     Route: 048
     Dates: start: 20210330, end: 20210330

REACTIONS (7)
  - Bradyphrenia [Recovered/Resolved]
  - Language disorder [Recovered/Resolved]
  - Tachycardia [Recovered/Resolved]
  - Hypokinesia [Recovered/Resolved]
  - Intentional self-injury [Recovered/Resolved]
  - Drug abuse [Recovered/Resolved]
  - Sopor [Recovered/Resolved]

NARRATIVE: CASE EVENT DATE: 20210330
